FAERS Safety Report 19157179 (Version 1)
Quarter: 2021Q2

REPORT INFORMATION
  Report Type: Spontaneous
  Country: IN (occurrence: IN)
  Receive Date: 20210420
  Receipt Date: 20210420
  Transmission Date: 20210717
  Serious: Yes (Other)
  Sender: FDA-Public Use
  Company Number: IN-RISING PHARMA HOLDINGS, INC.-2021RIS000034

PATIENT
  Age: 55 Year
  Sex: Male

DRUGS (1)
  1. DAPSONE. [Suspect]
     Active Substance: DAPSONE
     Indication: RHINOSPORIDIOSIS
     Dosage: 100 MILLIGRAM
     Route: 065

REACTIONS (2)
  - Autoimmune haemolytic anaemia [Recovering/Resolving]
  - Product use in unapproved indication [Unknown]
